FAERS Safety Report 25691173 (Version 1)
Quarter: 2025Q3

REPORT INFORMATION
  Report Type: Spontaneous
  Country: US (occurrence: None)
  Receive Date: 20250818
  Receipt Date: 20250818
  Transmission Date: 20251021
  Serious: Yes (Life-Threatening, Hospitalization)
  Sender: FDA-CTU
  Company Number: None

PATIENT
  Age: 64 Year
  Sex: Female

DRUGS (1)
  1. DAPTOMYCIN [Suspect]
     Active Substance: DAPTOMYCIN

REACTIONS (7)
  - Blood creatinine increased [None]
  - Finger amputation [None]
  - Blood creatine phosphokinase increased [None]
  - Localised infection [None]
  - Pseudomonas infection [None]
  - Enterobacter infection [None]
  - Candida infection [None]

NARRATIVE: CASE EVENT DATE: 20240508
